FAERS Safety Report 5717018-9 (Version None)
Quarter: 2008Q2

REPORT INFORMATION
  Report Type: 
  Country: None (occurrence: None)
  Receive Date: 20080423
  Receipt Date: 20080409
  Transmission Date: 20081010
  Serious: Yes (Hospitalization)
  Sender: FDA-Public Use
  Company Number: 2008BI008553

PATIENT
  Age: 60 Year
  Sex: Female
  Weight: 70.2 kg

DRUGS (8)
  1. TYSABRI [Suspect]
     Indication: MULTIPLE SCLEROSIS
     Dosage: 300 MG; QM; IV
     Route: 042
     Dates: start: 20071018
  2. PROVIGIL [Concomitant]
  3. SINGULAIR [Concomitant]
  4. PRILOSEC [Concomitant]
  5. LYRICA [Concomitant]
  6. THEOPHYLLINE-SR [Concomitant]
  7. LIDOCAINE [Concomitant]
  8. CALCIUM [Concomitant]

REACTIONS (13)
  - ADRENAL ADENOMA [None]
  - ASPARTATE AMINOTRANSFERASE INCREASED [None]
  - BLOOD ALBUMIN INCREASED [None]
  - BLOOD GLUCOSE INCREASED [None]
  - BLOOD POTASSIUM INCREASED [None]
  - BLOOD UREA DECREASED [None]
  - CHEST PAIN [None]
  - EMPHYSEMA [None]
  - GAIT DISTURBANCE [None]
  - LUNG NEOPLASM [None]
  - MYELOMALACIA [None]
  - OSTEOPOROSIS [None]
  - PULMONARY EMBOLISM [None]
